FAERS Safety Report 16919833 (Version 1)
Quarter: 2019Q4

REPORT INFORMATION
  Report Type: Spontaneous
  Country: CA (occurrence: CA)
  Receive Date: 20191015
  Receipt Date: 20191015
  Transmission Date: 20200122
  Serious: Yes (Other)
  Sender: FDA-Public Use
  Company Number: CA-TEVA-2019-CA-1121400

PATIENT
  Age: 57 Year
  Sex: Female

DRUGS (3)
  1. LOPERAMIDE HYDROCHLORIDE. [Concomitant]
     Active Substance: LOPERAMIDE HYDROCHLORIDE
  2. AFINITOR [Suspect]
     Active Substance: EVEROLIMUS
     Indication: NEUROENDOCRINE TUMOUR
     Dosage: 10 MILLIGRAM DAILY;
     Route: 048
  3. ONDANSETRON HYDROCHLORIDE DIHYDRATE INJECTION [Suspect]
     Active Substance: ONDANSETRON HYDROCHLORIDE
     Indication: PRODUCT USED FOR UNKNOWN INDICATION
     Dosage: 24 MILLIGRAM DAILY;
     Route: 048

REACTIONS (6)
  - Wrong technique in product usage process [Unknown]
  - Peripheral swelling [Unknown]
  - Chapped lips [Unknown]
  - Stomatitis [Unknown]
  - Nausea [Unknown]
  - Stomatitis haemorrhagic [Unknown]
